FAERS Safety Report 6407678-1 (Version None)
Quarter: 2009Q4

REPORT INFORMATION
  Report Type: 
  Country: None (occurrence: None)
  Receive Date: 20091015
  Receipt Date: 20091008
  Transmission Date: 20100525
  Serious: Yes (Life-Threatening, Hospitalization)
  Sender: FDA-Public Use
  Company Number: 6055049

PATIENT
  Age: 60 Year
  Sex: Female

DRUGS (4)
  1. LEVOTHYROXINE SODIUM [Suspect]
     Indication: DRUG USE FOR UNKNOWN INDICATION
     Dosage: 35 DOSAGE FORMS (35 DOSAGE FORMS, 1 ONCE); ORAL
     Route: 048
  2. SERESTA (50 MG, TABLET) (OCAZEPAM) [Suspect]
     Dosage: (21 DOSAGE FORMS, 1 ONCE); ORAL
     Route: 048
  3. TIAPRIDAL (100 MG, TABLET) (TIAPRIDE) [Suspect]
     Indication: DRUG USE FOR UNKNOWN INDICATION
     Dosage: (34 DOSAGE FORMS, 1 ONCE); ORAL
     Route: 048
  4. PROZAC [Suspect]
     Indication: DRUG USE FOR UNKNOWN INDICATION
     Dosage: 28 DOSAGE FORMS (28 DOSAGE FORMS, 1 ONCE); ORAL
     Route: 048

REACTIONS (16)
  - ALCOHOL USE [None]
  - AREFLEXIA [None]
  - BLOOD GLUCOSE INCREASED [None]
  - BREATH SOUNDS ABNORMAL [None]
  - CLUBBING [None]
  - CYANOSIS [None]
  - DRUG DEPENDENCE [None]
  - DRUG TOXICITY [None]
  - DRUG WITHDRAWAL SYNDROME [None]
  - HYPOTONIA [None]
  - INCORRECT DOSE ADMINISTERED [None]
  - LIVEDO RETICULARIS [None]
  - LOSS OF CONSCIOUSNESS [None]
  - MIOSIS [None]
  - PULSE ABSENT [None]
  - TREATMENT NONCOMPLIANCE [None]
